FAERS Safety Report 9837132 (Version 3)
Quarter: 2014Q2

REPORT INFORMATION
  Report Type: Spontaneous
  Country: US (occurrence: US)
  Receive Date: 20140123
  Receipt Date: 20140425
  Transmission Date: 20141212
  Serious: Yes (Other)
  Sender: FDA-Public Use
  Company Number: US-JNJFOC-20140108381

PATIENT
  Age: 34 Year
  Sex: Male

DRUGS (10)
  1. INVEGA SUSTENNA [Suspect]
     Indication: PSYCHOTIC DISORDER
     Route: 030
     Dates: start: 20120904
  2. INVEGA SUSTENNA [Suspect]
     Indication: PSYCHOTIC DISORDER
     Route: 030
     Dates: start: 201211
  3. INVEGA SUSTENNA [Suspect]
     Indication: PSYCHOTIC DISORDER
     Route: 030
     Dates: start: 201210
  4. CALCIUM [Concomitant]
     Indication: PROPHYLAXIS
     Route: 065
  5. VITAMIN C [Concomitant]
     Indication: PROPHYLAXIS
     Route: 065
  6. NIACIN [Concomitant]
     Indication: PROPHYLAXIS
     Route: 065
  7. ADENINE [Concomitant]
     Indication: GENERAL PHYSICAL CONDITION
     Route: 065
  8. ZINC [Concomitant]
     Indication: PROPHYLAXIS
     Route: 065
  9. OIL OF OREGANO [Concomitant]
     Indication: PROPHYLAXIS
     Route: 065
  10. VITAMIN B6 [Concomitant]
     Indication: PROPHYLAXIS
     Route: 065

REACTIONS (1)
  - Hepatic enzyme increased [Not Recovered/Not Resolved]
